FAERS Safety Report 8375318 (Version 2)
Quarter: 2013Q1

REPORT INFORMATION
  Report Type: Report from Study
  Country: PR (occurrence: PR)
  Receive Date: 20120129
  Receipt Date: 20130129
  Transmission Date: 20140127
  Serious: No
  Sender: FDA-Public Use
  Company Number: PR-ABBOTT-12P-131-0888738-00

PATIENT
  Sex: Male
  Weight: 115.32 kg

DRUGS (5)
  1. HUMIRA 40 MG/0.8 ML PEN [Suspect]
     Indication: PSORIASIS
     Route: 058
     Dates: start: 201005, end: 201112
  2. HUMIRA 40 MG/0.8 ML PEN [Suspect]
     Route: 058
     Dates: start: 201201
  3. HYZAAR [Concomitant]
     Indication: HYPERTENSION
     Dosage: 50/12.5MG-1 TABLET DAILY
     Route: 048
     Dates: start: 201112
  4. NABUMETONE [Concomitant]
     Indication: INTERVERTEBRAL DISC PROTRUSION
     Route: 048
  5. GABAPENTIN [Concomitant]
     Indication: INTERVERTEBRAL DISC PROTRUSION
     Route: 048

REACTIONS (2)
  - Gout [Recovered/Resolved]
  - Arthritis [Recovered/Resolved]
